FAERS Safety Report 25114974 (Version 1)
Quarter: 2025Q1

REPORT INFORMATION
  Report Type: Spontaneous
  Country: NL (occurrence: NL)
  Receive Date: 20250324
  Receipt Date: 20250324
  Transmission Date: 20250408
  Serious: Yes (Other)
  Sender: TEVA
  Company Number: None

PATIENT
  Age: 63 Year
  Sex: Male
  Weight: 85 kg

DRUGS (1)
  1. OXYCODONE [Suspect]
     Active Substance: OXYCODONE
     Indication: Osteoarthritis
     Route: 048
     Dates: start: 20180101

REACTIONS (4)
  - Sleep apnoea syndrome [Recovered/Resolved]
  - Mood swings [Recovered/Resolved]
  - Anger [Recovered/Resolved]
  - Drug dependence [Recovered/Resolved]
